FAERS Safety Report 19846995 (Version 1)
Quarter: 2021Q3

REPORT INFORMATION
  Report Type: Spontaneous
  Country: US (occurrence: US)
  Receive Date: 20210916
  Receipt Date: 20210916
  Transmission Date: 20211014
  Serious: No
  Sender: FDA-Public Use
  Company Number: None

PATIENT
  Sex: Male

DRUGS (1)
  1. STELARA [Suspect]
     Active Substance: USTEKINUMAB
     Indication: CROHN^S DISEASE
     Dosage: OTHER FREQUENCY:EVERY 8 WEEKS;?
     Route: 058
     Dates: start: 202101

REACTIONS (8)
  - Vomiting [None]
  - Malaise [None]
  - Drug intolerance [None]
  - Post procedural complication [None]
  - Intestinal resection [None]
  - Abdominal pain upper [None]
  - Gastrooesophageal reflux disease [None]
  - Adverse drug reaction [None]
